FAERS Safety Report 17697568 (Version 1)
Quarter: 2020Q2

REPORT INFORMATION
  Report Type: Spontaneous
  Country: US (occurrence: US)
  Receive Date: 20200422
  Receipt Date: 20200422
  Transmission Date: 20200714
  Serious: Yes (Hospitalization)
  Sender: FDA-Public Use
  Company Number: None

PATIENT
  Age: 56 Year
  Sex: Male

DRUGS (9)
  1. NOVOLOG [Concomitant]
     Active Substance: INSULIN ASPART
  2. TOPIRAMATE. [Concomitant]
     Active Substance: TOPIRAMATE
  3. DOFETILIDE 250MCG CAP [Suspect]
     Active Substance: DOFETILIDE
     Indication: ATRIAL FIBRILLATION
     Route: 048
     Dates: start: 20191204
  4. KEPPRA [Concomitant]
     Active Substance: LEVETIRACETAM
  5. LANTUS [Concomitant]
     Active Substance: INSULIN GLARGINE
  6. FLEXPEN [Concomitant]
     Active Substance: UNSPECIFIED INGREDIENT
  7. TORSEMIDE. [Concomitant]
     Active Substance: TORSEMIDE
  8. XARELTO [Concomitant]
     Active Substance: RIVAROXABAN
  9. METOPROL TAR [Concomitant]

REACTIONS (1)
  - Hospitalisation [None]

NARRATIVE: CASE EVENT DATE: 20200418
